FAERS Safety Report 23548278 (Version 1)
Quarter: 2024Q1

REPORT INFORMATION
  Report Type: Spontaneous
  Country: GR (occurrence: GR)
  Receive Date: 20240221
  Receipt Date: 20240221
  Transmission Date: 20240410
  Serious: Yes (Other)
  Sender: FDA-Public Use
  Company Number: GR-ENDO PHARMACEUTICALS INC-2024-000924

PATIENT
  Age: 55 Year
  Sex: Female

DRUGS (2)
  1. ZOLPIDEM TARTRATE [Suspect]
     Active Substance: ZOLPIDEM TARTRATE
     Indication: Insomnia
     Dosage: 10 MILLIGRAM, DAILY (BEFORE BEDTIME)
     Route: 065
  2. VALERIAN [Suspect]
     Active Substance: VALERIAN
     Indication: Insomnia
     Dosage: UNK UNKNOWN, UNKNOWN
     Route: 065

REACTIONS (5)
  - Persistent genital arousal disorder [Recovered/Resolved]
  - Drug interaction [Recovered/Resolved]
  - Tension [Recovered/Resolved]
  - Anxiety [Recovered/Resolved]
  - Drug effect less than expected [Recovered/Resolved]
